FAERS Safety Report 6709265-4 (Version None)
Quarter: 2010Q2

REPORT INFORMATION
  Report Type: 
  Country: None (occurrence: None)
  Receive Date: 20100504
  Receipt Date: 20100412
  Transmission Date: 20101027
  Serious: Yes (Hospitalization)
  Sender: FDA-Public Use
  Company Number: US-SANOFI-AVENTIS-A03200905049

PATIENT
  Age: 84 Year
  Sex: Male

DRUGS (4)
  1. MULTAQ [Suspect]
     Route: 048
     Dates: start: 20091020, end: 20091023
  2. LYRICA [Concomitant]
     Dosage: UNK
  3. PRAVASTATIN [Concomitant]
  4. COUMADIN [Concomitant]
     Dosage: UNK

REACTIONS (3)
  - BRAIN NATRIURETIC PEPTIDE INCREASED [None]
  - CARDIAC FAILURE CONGESTIVE [None]
  - DYSPNOEA [None]
